FAERS Safety Report 5573868-3 (Version None)
Quarter: 2007Q4

REPORT INFORMATION
  Report Type: 
  Country: None (occurrence: None)
  Receive Date: 20071226
  Receipt Date: 20071213
  Transmission Date: 20080405
  Serious: Yes (Other)
  Sender: FDA-Public Use
  Company Number: GB-RANBAXY-2007RR-12063

PATIENT

DRUGS (5)
  1. PRAVASTATIN SODIUM 20 MG TABLETS [Suspect]
     Indication: BLOOD CHOLESTEROL INCREASED
     Dosage: 20 MG, UNK
     Route: 048
     Dates: start: 20071001, end: 20071109
  2. PRAVASTATIN SODIUM 40 MG TABLETS [Suspect]
     Indication: BLOOD CHOLESTEROL INCREASED
     Dosage: 40 MG, UNK
     Route: 048
     Dates: start: 20071109, end: 20071207
  3. ATENOLOL TABLETS BP 50MG [Concomitant]
     Dosage: 50 MG, UNK
     Route: 048
     Dates: start: 20060515
  4. CLIOQUINOL [Concomitant]
     Indication: EAR PAIN
     Dosage: 2 DF, BID
     Route: 001
     Dates: start: 20070920
  5. FLUMETASONE [Concomitant]
     Indication: EAR PAIN
     Dosage: 2 DF, BID
     Route: 001
     Dates: start: 20070920

REACTIONS (9)
  - AMNESIA [None]
  - ASTHENIA [None]
  - CONFUSIONAL STATE [None]
  - GRIP STRENGTH DECREASED [None]
  - LIBIDO DECREASED [None]
  - MUSCULAR WEAKNESS [None]
  - NOCTURIA [None]
  - SLEEP DISORDER [None]
  - SWOLLEN TONGUE [None]
